FAERS Safety Report 12485599 (Version 3)
Quarter: 2016Q3

REPORT INFORMATION
  Report Type: Report from Study
  Country: US (occurrence: US)
  Receive Date: 20160621
  Receipt Date: 20160725
  Transmission Date: 20161109
  Serious: Yes (Death, Hospitalization, Other)
  Sender: FDA-Public Use
  Company Number: US-JNJFOC-20160328281

PATIENT
  Age: 55 Year
  Sex: Male

DRUGS (4)
  1. MORNIFLUMATE [Concomitant]
     Active Substance: MORNIFLUMATE
  2. IMBRUVICA [Suspect]
     Active Substance: IBRUTINIB
     Indication: CHRONIC LYMPHOCYTIC LEUKAEMIA
     Route: 048
     Dates: start: 20150210, end: 20160505
  3. CIPROFLOXACIN. [Concomitant]
     Active Substance: CIPROFLOXACIN
     Indication: URINARY TRACT INFECTION
  4. POSCARL [Concomitant]

REACTIONS (7)
  - Plasma cell myeloma [Not Recovered/Not Resolved]
  - Abdominal discomfort [Recovered/Resolved]
  - Vision blurred [Recovered/Resolved]
  - Cardio-respiratory arrest [Fatal]
  - Embolism [Unknown]
  - Urinary tract infection [Recovering/Resolving]
  - Dizziness [Recovered/Resolved]

NARRATIVE: CASE EVENT DATE: 2016
